FAERS Safety Report 5763128-X (Version None)
Quarter: 2008Q2

REPORT INFORMATION
  Report Type: 
  Country: None (occurrence: None)
  Receive Date: 20080609
  Receipt Date: 20080527
  Transmission Date: 20081010
  Serious: Yes (Other)
  Sender: FDA-Public Use
  Company Number: US-ELI_LILLY_AND_COMPANY-US200805000020

PATIENT
  Sex: Female
  Weight: 57.596 kg

DRUGS (3)
  1. EVISTA [Suspect]
     Indication: OSTEOPENIA
     Dosage: 60 MG, UNK
     Dates: start: 20070801
  2. DIOVAN HCT [Concomitant]
     Dosage: UNK, DAILY (1/D)
     Dates: start: 20040101
  3. K-DUR [Concomitant]
     Dosage: 20 MEQ, DAILY (1/D)
     Dates: start: 20080401

REACTIONS (2)
  - ALANINE AMINOTRANSFERASE INCREASED [None]
  - ASPARTATE AMINOTRANSFERASE INCREASED [None]
